FAERS Safety Report 21983961 (Version 6)
Quarter: 2025Q3

REPORT INFORMATION
  Report Type: Spontaneous
  Country: None (occurrence: CA)
  Receive Date: 20230213
  Receipt Date: 20250811
  Transmission Date: 20251020
  Serious: Yes (Hospitalization, Other)
  Sender: MYLAN
  Company Number: CA-MYLANLABS-2023M1000106

PATIENT
  Age: 75 Year
  Sex: Female
  Weight: 34.02 kg

DRUGS (18)
  1. REVATIO [Suspect]
     Active Substance: SILDENAFIL CITRATE
     Indication: Pulmonary arterial hypertension
     Dosage: 20 MILLIGRAM, TID (THREE TIMES A DAY)
     Dates: start: 20200228
  2. SPIRONOLACTONE [Concomitant]
     Active Substance: SPIRONOLACTONE
  3. SYMBICORT [Concomitant]
     Active Substance: BUDESONIDE\FORMOTEROL FUMARATE DIHYDRATE
  4. ROSUVASTATIN [Concomitant]
     Active Substance: ROSUVASTATIN
  5. ALLOPURINOL [Concomitant]
     Active Substance: ALLOPURINOL
  6. LORAZEPAM [Concomitant]
     Active Substance: LORAZEPAM
  7. FUROSEMIDE [Concomitant]
     Active Substance: FUROSEMIDE
  8. FERROUS GLUCONATE [Concomitant]
     Active Substance: FERROUS GLUCONATE
  9. RABEPRAZOLE [Concomitant]
     Active Substance: RABEPRAZOLE
  10. VITAMIN C [Concomitant]
     Active Substance: ASCORBIC ACID
  11. VITAMIN D [Concomitant]
     Active Substance: VITAMIN D NOS
  12. CALCIUM\MAGNESIUM [Concomitant]
     Active Substance: CALCIUM\MAGNESIUM
  13. OMEGA 3 [Concomitant]
     Active Substance: CAPSAICIN
  14. ASPIRIN [Concomitant]
     Active Substance: ASPIRIN
  15. OPSUMIT [Concomitant]
     Active Substance: MACITENTAN
  16. LASIX [Concomitant]
     Active Substance: FUROSEMIDE
  17. VITAMIN C [Concomitant]
     Active Substance: ASCORBIC ACID
  18. MACITENTAN [Concomitant]
     Active Substance: MACITENTAN

REACTIONS (13)
  - Haemorrhage [Recovered/Resolved]
  - Hiatus hernia [Recovered/Resolved]
  - Gastroenteritis viral [Recovered/Resolved]
  - Heart valve replacement [Unknown]
  - Chest pain [Unknown]
  - Vomiting [Recovered/Resolved]
  - Oxygen therapy [Unknown]
  - Aortic stenosis [Unknown]
  - Condition aggravated [Unknown]
  - Urinary tract infection [Recovered/Resolved]
  - Peripheral swelling [Recovered/Resolved]
  - Diarrhoea [Recovering/Resolving]
  - Fracture [Unknown]

NARRATIVE: CASE EVENT DATE: 20230225
